FAERS Safety Report 6866907-0 (Version None)
Quarter: 2010Q2

REPORT INFORMATION
  Report Type: 
  Country: None (occurrence: None)
  Receive Date: 20100607
  Receipt Date: 20100311
  Transmission Date: 20101027
  Serious: No
  Sender: FDA-Public Use
  Company Number: 2010-00331

PATIENT
  Age: 68 Year
  Sex: Male
  Weight: 70.3075 kg

DRUGS (6)
  1. ZICAM COLD REMEDY ORAL MIST [Suspect]
     Dosage: 3 HRS X 4 DAYS
     Dates: start: 20100304, end: 20100308
  2. LEVOTHYROXINE [Concomitant]
  3. ZOCOR [Concomitant]
  4. LISINOPRIL AND HYDROCHLOROTHIAZIDE [Concomitant]
  5. MULTI-VITAMIN [Concomitant]
  6. VITAMIN E [Concomitant]

REACTIONS (3)
  - AGEUSIA [None]
  - ANOSMIA [None]
  - TONGUE COATED [None]
